FAERS Safety Report 21544554 (Version 1)
Quarter: 2022Q4

REPORT INFORMATION
  Report Type: Spontaneous
  Country: CN (occurrence: CN)
  Receive Date: 20221102
  Receipt Date: 20221102
  Transmission Date: 20230113
  Serious: Yes (Other)
  Sender: FDA-Public Use
  Company Number: CN-PFIZER INC-PV202200092862

PATIENT
  Age: 2 Year
  Sex: Male
  Weight: 12 kg

DRUGS (2)
  1. AZITHROMYCIN [Suspect]
     Active Substance: AZITHROMYCIN
     Indication: Pneumonia
     Dosage: 120 MG, 1X/DAY
     Route: 048
     Dates: start: 20221008, end: 20221013
  2. AZITHROMYCIN [Suspect]
     Active Substance: AZITHROMYCIN
     Indication: Influenza

REACTIONS (1)
  - Ventricular arrhythmia [Recovering/Resolving]

NARRATIVE: CASE EVENT DATE: 20221013
